FAERS Safety Report 17641972 (Version 1)
Quarter: 2020Q2

REPORT INFORMATION
  Report Type: Spontaneous
  Country: IT (occurrence: IT)
  Receive Date: 20200407
  Receipt Date: 20200407
  Transmission Date: 20200713
  Serious: Yes (Other)
  Sender: FDA-Public Use
  Company Number: IT-AUROBINDO-AUR-APL-2020-016599

PATIENT
  Age: 92 Year
  Sex: Female

DRUGS (9)
  1. LOSARTAN FILM-COATED TABLETS [Interacting]
     Active Substance: LOSARTAN
     Indication: HYPERTENSION
     Dosage: 50 MILLIGRAM, ONCE A DAY
     Route: 048
  2. DUOTRAV [Concomitant]
     Active Substance: TIMOLOL MALEATE\TRAVOPROST
     Indication: PRODUCT USED FOR UNKNOWN INDICATION
     Dosage: UNK
     Route: 065
  3. TRAZODONE HYDROCHLORIDE. [Concomitant]
     Active Substance: TRAZODONE HYDROCHLORIDE
     Indication: PRODUCT USED FOR UNKNOWN INDICATION
     Dosage: UNK
     Route: 065
  4. COUMADIN [Concomitant]
     Active Substance: WARFARIN SODIUM
     Indication: PRODUCT USED FOR UNKNOWN INDICATION
     Dosage: UNK
     Route: 065
  5. LANSOPRAZOLE. [Concomitant]
     Active Substance: LANSOPRAZOLE
     Indication: PRODUCT USED FOR UNKNOWN INDICATION
     Dosage: UNK
     Route: 065
  6. FUROSEMIDE TABLETS [Interacting]
     Active Substance: FUROSEMIDE
     Indication: CARDIOMYOPATHY
     Dosage: 50 MILLIGRAM, ONCE A DAY
     Route: 048
  7. LASITONE [Interacting]
     Active Substance: FUROSEMIDE\SPIRONOLACTONE
     Indication: CARDIOMYOPATHY
     Dosage: 25 MILLIGRAM, ONCE A DAY
     Route: 048
  8. LEVETIRACETAM. [Concomitant]
     Active Substance: LEVETIRACETAM
  9. ATENOLOL FILM COATED TABLETS [Suspect]
     Active Substance: ATENOLOL
     Indication: TACHYCARDIA
     Dosage: 50 MILLIGRAM, ONCE A DAY
     Route: 048

REACTIONS (3)
  - Drug interaction [Recovering/Resolving]
  - Orthostatic hypotension [Recovering/Resolving]
  - Bradycardia [Recovering/Resolving]

NARRATIVE: CASE EVENT DATE: 20200314
